FAERS Safety Report 21997563 (Version 2)
Quarter: 2023Q1

REPORT INFORMATION
  Report Type: Report from Study
  Country: US (occurrence: US)
  Receive Date: 20230216
  Receipt Date: 20230221
  Transmission Date: 20230418
  Serious: Yes (Hospitalization)
  Sender: FDA-Public Use
  Company Number: US-ABBVIE-4309234

PATIENT
  Age: 72 Year
  Sex: Male

DRUGS (1)
  1. IMBRUVICA [Suspect]
     Active Substance: IBRUTINIB
     Indication: Product used for unknown indication
     Route: 048

REACTIONS (5)
  - Myocardial fibrosis [Unknown]
  - Discomfort [Unknown]
  - Cardiac disorder [Unknown]
  - Enzyme level increased [Unknown]
  - Chills [Unknown]

NARRATIVE: CASE EVENT DATE: 20230209
